FAERS Safety Report 14300561 (Version 1)
Quarter: 2017Q4

REPORT INFORMATION
  Report Type: Spontaneous
  Country: US (occurrence: US)
  Receive Date: 20171218
  Receipt Date: 20171218
  Transmission Date: 20180321
  Serious: No
  Sender: FDA-Public Use
  Company Number: None

PATIENT
  Sex: Female
  Weight: 49.9 kg

DRUGS (5)
  1. FORTEO [Suspect]
     Active Substance: TERIPARATIDE
     Indication: TOBACCO USER
     Dosage: JUL2017- D/D^ED
     Route: 058
     Dates: start: 201707
  2. FORTEO [Suspect]
     Active Substance: TERIPARATIDE
     Indication: HORMONE REPLACEMENT THERAPY
     Dosage: JUL2017- D/D^ED
     Route: 058
     Dates: start: 201707
  3. FORTEO [Suspect]
     Active Substance: TERIPARATIDE
     Indication: BONE DISORDER
     Dosage: JUL2017- D/D^ED
     Route: 058
     Dates: start: 201707
  4. FORTEO [Suspect]
     Active Substance: TERIPARATIDE
     Indication: OSTEOPOROSIS
     Dosage: JUL2017- D/D^ED
     Route: 058
     Dates: start: 201707
  5. FORTEO [Suspect]
     Active Substance: TERIPARATIDE
     Indication: PRODUCT USED FOR UNKNOWN INDICATION
     Dosage: JUL2017- D/D^ED
     Route: 058
     Dates: start: 201707

REACTIONS (3)
  - Diarrhoea [None]
  - Cystitis [None]
  - Alopecia [None]
